FAERS Safety Report 4833180-4 (Version None)
Quarter: 2005Q4

REPORT INFORMATION
  Report Type: 
  Country: None (occurrence: None)
  Receive Date: 20051117
  Receipt Date: 20051104
  Transmission Date: 20060501
  Serious: Yes (Hospitalization)
  Sender: FDA-Public Use
  Company Number: KII-2005-0019501

PATIENT
  Age: 35 Year
  Sex: Female

DRUGS (11)
  1. OXYCODONE HCL [Suspect]
     Dosage: ORAL
     Route: 048
  2. KLONOPIN [Suspect]
     Dosage: ORAL
     Route: 048
  3. BENZODIAZEPINE DERIVATIVES [Suspect]
     Dosage: ORAL
     Route: 048
  4. CYCLOBENZAPRINE(CYCLOBENZAPRINE) [Suspect]
     Dosage: ORAL
     Route: 048
  5. DICYCLOMINE HCL [Suspect]
     Dosage: ORAL
     Route: 048
  6. ACETAMINOPHEN W/ CODEINE [Suspect]
     Dosage: ORAL
     Route: 048
  7. PROMETHAZINE [Suspect]
     Dosage: ORAL
     Route: 048
  8. TEMAZEPAM [Suspect]
     Dosage: ORAL
     Route: 048
  9. TRIAZOLAM [Suspect]
     Dosage: ORAL
     Route: 048
  10. ANTIDEPRESSANTS [Suspect]
     Dosage: ORAL
     Route: 048
  11. SSRI [Suspect]
     Dosage: ORAL
     Route: 048

REACTIONS (4)
  - AREFLEXIA [None]
  - DEPRESSED LEVEL OF CONSCIOUSNESS [None]
  - DRUG SCREEN POSITIVE [None]
  - PARALYSIS [None]
